FAERS Safety Report 7925315 (Version 3)
Quarter: 2014Q2

REPORT INFORMATION
  Report Type: Spontaneous
  Country: US (occurrence: US)
  Receive Date: 20110502
  Receipt Date: 20140512
  Transmission Date: 20141212
  Serious: No
  Sender: FDA-Public Use
  Company Number: US-ASTRAZENECA-2010SE22461

PATIENT
  Age: 15644 Day
  Sex: Female
  Weight: 95.3 kg

DRUGS (11)
  1. NEXIUM [Suspect]
     Indication: GASTROOESOPHAGEAL REFLUX DISEASE
     Route: 048
  2. NEXIUM [Suspect]
     Indication: GASTROOESOPHAGEAL REFLUX DISEASE
     Route: 048
     Dates: start: 2012, end: 201312
  3. CENTRUM CHEWABLE [Concomitant]
  4. IRON [Concomitant]
  5. MAXALT [Concomitant]
  6. VITAMIN B12 [Concomitant]
  7. VITAMIN D [Concomitant]
     Indication: VITAMIN D DEFICIENCY
  8. MULTIVITAMIN [Concomitant]
     Indication: VITAMIN SUPPLEMENTATION
  9. MIGRAINE MEDICINE PILL [Concomitant]
  10. DETROL LA [Concomitant]
     Indication: INCONTINENCE
  11. ASPIRIN [Concomitant]

REACTIONS (11)
  - Chest pain [Unknown]
  - Gastrooesophageal reflux disease [Unknown]
  - Migraine [Recovered/Resolved]
  - Chest discomfort [Unknown]
  - Pain in extremity [Unknown]
  - Visual acuity reduced [Unknown]
  - Nausea [Recovered/Resolved]
  - Paraesthesia [Unknown]
  - Intentional product misuse [Unknown]
  - Intentional product misuse [Unknown]
  - Drug dose omission [Unknown]
